FAERS Safety Report 5389123-0 (Version None)
Quarter: 2007Q3

REPORT INFORMATION
  Report Type: 
  Country: None (occurrence: None)
  Receive Date: 20070713
  Receipt Date: 20070713
  Transmission Date: 20080115
  Serious: Yes (Death)
  Sender: FDA-Public Use
  Company Number: None

PATIENT
  Age: 19 Year
  Sex: Female
  Weight: 81.6475 kg

DRUGS (1)
  1. METHADONE HCL [Suspect]
     Dates: start: 20060225, end: 20060304

REACTIONS (3)
  - DRUG ABUSER [None]
  - DRUG TOXICITY [None]
  - LEGAL PROBLEM [None]
